FAERS Safety Report 24865402 (Version 1)
Quarter: 2025Q1

REPORT INFORMATION
  Report Type: Report from Study
  Country: DE (occurrence: DE)
  Receive Date: 20250121
  Receipt Date: 20250121
  Transmission Date: 20250409
  Serious: Yes (Death, Life-Threatening)
  Sender: EMD SERONO INC
  Company Number: DE-Merck Healthcare KGaA-2025002213

PATIENT
  Age: 8 Year
  Sex: Male

DRUGS (1)
  1. SAIZEN [Suspect]
     Active Substance: SOMATROPIN
     Indication: Product used for unknown indication
     Dosage: THERAPY STARTED IN JUN/JUL 2022
     Dates: start: 2022

REACTIONS (3)
  - Brain oedema [Fatal]
  - Coma [Unknown]
  - Cardiac arrest [Unknown]

NARRATIVE: CASE EVENT DATE: 20241104
